FAERS Safety Report 7214834-1 (Version None)
Quarter: 2011Q1

REPORT INFORMATION
  Report Type: 
  Country: None (occurrence: None)
  Receive Date: 20110107
  Receipt Date: 20100323
  Transmission Date: 20110831
  Serious: No
  Sender: FDA-Public Use
  Company Number: A0851607A

PATIENT
  Sex: Female

DRUGS (8)
  1. LOVAZA [Suspect]
     Dosage: 2CAP TWICE PER DAY
     Route: 048
     Dates: start: 20100322
  2. PROTONIX [Concomitant]
     Dates: end: 20100201
  3. TOPROL-XL [Concomitant]
  4. CALCIUM [Concomitant]
  5. M.V.I. [Concomitant]
  6. LIPITOR [Concomitant]
  7. PRILOSEC [Concomitant]
     Dates: end: 20100201
  8. SYNTHROID [Concomitant]

REACTIONS (3)
  - DYSPEPSIA [None]
  - ERUCTATION [None]
  - NAUSEA [None]
